FAERS Safety Report 11746990 (Version 2)
Quarter: 2015Q4

REPORT INFORMATION
  Report Type: Spontaneous
  Country: FR (occurrence: FR)
  Receive Date: 20151117
  Receipt Date: 20151224
  Transmission Date: 20160304
  Serious: Yes (Hospitalization)
  Sender: FDA-Public Use
  Company Number: FR-PFIZER INC-2015385491

PATIENT
  Age: 85 Year
  Sex: Male

DRUGS (12)
  1. CEFOTAXIME [Suspect]
     Active Substance: CEFOTAXIME SODIUM
     Indication: RENAL FAILURE
  2. BACTRIM [Suspect]
     Active Substance: SULFAMETHOXAZOLE\TRIMETHOPRIM
     Indication: PROSTATITIS
     Dosage: 1 DF, 1X/DAY
     Route: 048
     Dates: start: 20151022, end: 20151024
  3. LERCAN [Concomitant]
     Active Substance: LERCANIDIPINE
     Dosage: 20 MG
  4. SECTRAL [Concomitant]
     Active Substance: ACEBUTOLOL HYDROCHLORIDE
     Dosage: 200 MG
  5. LASILIX [Concomitant]
     Active Substance: FUROSEMIDE
     Dosage: 40 MG
  6. PREVISCAN [Concomitant]
     Active Substance: FLUINDIONE
     Dosage: 20 MG
  7. LYRICA [Suspect]
     Active Substance: PREGABALIN
     Indication: NEURALGIA
     Dosage: 50 MG, 3X/DAY
     Route: 048
     Dates: start: 20151020, end: 20151027
  8. CEFOTAXIME [Suspect]
     Active Substance: CEFOTAXIME SODIUM
     Indication: PROSTATITIS
     Dosage: 1 G, 3X/DAY
     Dates: start: 20151020, end: 20151022
  9. HYPERIUM [Concomitant]
     Active Substance: RILMENIDINE PHOSPHATE
     Dosage: 1 MG
  10. AVODART [Concomitant]
     Active Substance: DUTASTERIDE
     Dosage: 0.5 MG
  11. MICARDIS [Concomitant]
     Active Substance: TELMISARTAN
     Dosage: 80 MG
  12. XATRAL LP [Concomitant]
     Active Substance: ALFUZOSIN
     Dosage: 10 MG

REACTIONS (1)
  - Acute kidney injury [Not Recovered/Not Resolved]

NARRATIVE: CASE EVENT DATE: 20151024
